FAERS Safety Report 4986077-3 (Version None)
Quarter: 2006Q2

REPORT INFORMATION
  Report Type: 
  Country: None (occurrence: None)
  Receive Date: 20060428
  Receipt Date: 20060418
  Transmission Date: 20061013
  Serious: Yes (Other)
  Sender: FDA-Public Use
  Company Number: PHBS2006SE05487

PATIENT
  Age: 78 Year
  Sex: Female

DRUGS (8)
  1. ZOMETA [Suspect]
     Indication: MULTIPLE MYELOMA
     Dosage: 4 MG, UNK
     Route: 065
  2. ALVEDON [Concomitant]
     Route: 065
  3. OXYNORM [Concomitant]
     Route: 065
  4. DIFLUCAN [Concomitant]
     Route: 065
  5. OXYCONTIN [Concomitant]
     Route: 065
  6. WARAN [Concomitant]
     Route: 065
  7. OXASCAND [Concomitant]
     Route: 065
  8. THALIDOMIDE [Concomitant]
     Route: 065

REACTIONS (2)
  - BLISTER [None]
  - OSTEONECROSIS [None]
